FAERS Safety Report 8200093-X (Version None)
Quarter: 2012Q1

REPORT INFORMATION
  Report Type: 
  Country: None (occurrence: None)
  Receive Date: 20120306
  Receipt Date: 20120224
  Transmission Date: 20120608
  Serious: Yes (Other)
  Sender: FDA-Public Use
  Company Number: 1202-094

PATIENT
  Sex: Female

DRUGS (1)
  1. EYLEA [Suspect]
     Dosage: INTRAVITREAL

REACTIONS (1)
  - EYE INFLAMMATION [None]
